FAERS Safety Report 6647641-9 (Version None)
Quarter: 2010Q1

REPORT INFORMATION
  Report Type: 
  Country: None (occurrence: None)
  Receive Date: 20100323
  Receipt Date: 20100323
  Transmission Date: 20100710
  Serious: Yes (Hospitalization)
  Sender: FDA-Public Use
  Company Number: None

PATIENT
  Sex: Female
  Weight: 53.5244 kg

DRUGS (2)
  1. BONIVA [Suspect]
     Indication: OSTEOPOROSIS
     Dosage: 150MG MONTHLY ORALLY
     Route: 048
     Dates: start: 20070801
  2. BONIVA [Suspect]
     Indication: OSTEOPOROSIS
     Dosage: 3MG 3 MONTHS INTRAVENOUS INJECTION
     Route: 042
     Dates: start: 20091001

REACTIONS (13)
  - ASTHENIA [None]
  - BONE PAIN [None]
  - CONSTIPATION [None]
  - DEPRESSION [None]
  - DIZZINESS [None]
  - FATIGUE [None]
  - HEADACHE [None]
  - MYALGIA [None]
  - MYOCARDIAL INFARCTION [None]
  - PAIN [None]
  - PAIN IN JAW [None]
  - RASH [None]
  - VERTIGO [None]
